FAERS Safety Report 9016821 (Version 1)
Quarter: 2013Q1

REPORT INFORMATION
  Report Type: Spontaneous
  Country: FR (occurrence: FR)
  Receive Date: 20130117
  Receipt Date: 20130117
  Transmission Date: 20140127
  Serious: Yes (Life-Threatening, Hospitalization)
  Sender: FDA-Public Use
  Company Number: FR-ELI_LILLY_AND_COMPANY-FR201301002830

PATIENT
  Age: 39 Year
  Sex: Female
  Weight: 110 kg

DRUGS (4)
  1. ZYPREXA [Suspect]
     Indication: BIPOLAR DISORDER
     Dosage: 17.5 MG, QD
     Route: 048
     Dates: start: 2011, end: 201208
  2. TEMERIT [Concomitant]
     Dosage: 5 MG, QD
  3. LERCAN [Concomitant]
     Dosage: 20 MG, QD
  4. INEXIUM [Concomitant]
     Dosage: 20 MG, QD

REACTIONS (4)
  - Hyperglycaemic hyperosmolar nonketotic syndrome [Recovered/Resolved]
  - Renal failure acute [Recovered/Resolved]
  - Diabetes mellitus [Unknown]
  - Dyskinesia [Unknown]
